FAERS Safety Report 19549282 (Version 1)
Quarter: 2021Q3

REPORT INFORMATION
  Report Type: Spontaneous
  Country: BE (occurrence: BE)
  Receive Date: 20210714
  Receipt Date: 20210714
  Transmission Date: 20211014
  Serious: Yes (Hospitalization)
  Sender: FDA-Public Use
  Company Number: BE-ORGANON-2006BEL006460

PATIENT
  Age: 67 Year
  Sex: Male

DRUGS (12)
  1. COLCHICINE. [Interacting]
     Active Substance: COLCHICINE
     Indication: GOUT
     Dosage: 1 MILLIGRAM, QD
  2. ALLOPURINOL. [Concomitant]
     Active Substance: ALLOPURINOL
     Dosage: UNK
  3. CLOPIDOGREL [Interacting]
     Active Substance: CLOPIDOGREL BISULFATE
     Dosage: UNK
  4. MOXONIDINE [Concomitant]
     Active Substance: MOXONIDINE
     Dosage: UNK
  5. METFORMIN [Concomitant]
     Active Substance: METFORMIN HYDROCHLORIDE
     Indication: TYPE 2 DIABETES MELLITUS
     Dosage: UNK
  6. REPAGLINIDE. [Interacting]
     Active Substance: REPAGLINIDE
     Dosage: 1 MILLIGRAM, BID
  7. LERCANIDIPINE [Interacting]
     Active Substance: LERCANIDIPINE
     Dosage: UNK
  8. PANTOPRAZOLE [Concomitant]
     Active Substance: PANTOPRAZOLE
     Dosage: UNK
  9. SIMVASTATIN. [Suspect]
     Active Substance: SIMVASTATIN
     Dosage: UNK
     Route: 048
  10. APIXABAN [Interacting]
     Active Substance: APIXABAN
     Dosage: UNK
  11. EPLERENONE. [Interacting]
     Active Substance: EPLERENONE
     Dosage: UNK
  12. LOSARTAN POTASSIUM. [Concomitant]
     Active Substance: LOSARTAN POTASSIUM
     Dosage: UNK
     Route: 048

REACTIONS (2)
  - Drug interaction [Unknown]
  - Hypoglycaemia [Unknown]
